FAERS Safety Report 11590130 (Version 1)
Quarter: 2015Q4

REPORT INFORMATION
  Report Type: Spontaneous
  Country: FR (occurrence: FR)
  Receive Date: 20151002
  Receipt Date: 20151002
  Transmission Date: 20160304
  Serious: Yes (Hospitalization)
  Sender: FDA-Public Use
  Company Number: FR-BAYER-2015-432993

PATIENT
  Age: 79 Year
  Sex: Male

DRUGS (5)
  1. ULTRAVIST [Suspect]
     Active Substance: IOPROMIDE
     Indication: MASS
  2. ULTRAVIST [Suspect]
     Active Substance: IOPROMIDE
     Indication: SCAN
     Dosage: 100 ML, ONCE
     Route: 042
     Dates: start: 20150808, end: 20150808
  3. ULTRAVIST [Suspect]
     Active Substance: IOPROMIDE
     Indication: HEPATOSPLENOMEGALY
  4. VERCYTE [Concomitant]
     Active Substance: PIPOBROMAN
     Indication: POLYCYTHAEMIA VERA
     Dosage: 6 DF, OW
     Route: 048
     Dates: start: 2013
  5. TRANSILANE [Concomitant]
     Active Substance: POTASSIUM BICARBONATE\PSYLLIUM HUSK
     Indication: CONSTIPATION
     Dosage: UNK
     Route: 048
     Dates: start: 201508, end: 201508

REACTIONS (3)
  - Myalgia [Recovered/Resolved]
  - Vascular purpura [Recovering/Resolving]
  - Diffuse vasculitis [Not Recovered/Not Resolved]

NARRATIVE: CASE EVENT DATE: 20150808
